FAERS Safety Report 5147542-1 (Version None)
Quarter: 2006Q4

REPORT INFORMATION
  Report Type: 
  Country: None (occurrence: None)
  Receive Date: 20061109
  Receipt Date: 20060213
  Transmission Date: 20070319
  Serious: Yes (Other)
  Sender: FDA-Public Use
  Company Number: GB-ABBOTT-06P-167-0325003-00

PATIENT

DRUGS (7)
  1. KALETRA [Suspect]
     Indication: RETROVIRAL INFECTION
     Route: 048
     Dates: start: 20060103
  2. TENOFOVIR [Concomitant]
     Indication: RETROVIRAL INFECTION
     Route: 048
     Dates: start: 20060103
  3. STAVUDINE [Concomitant]
     Indication: RETROVIRAL INFECTION
     Route: 048
     Dates: start: 20060117
  4. BACTRIM [Concomitant]
     Indication: ANTIFUNGAL PROPHYLAXIS
     Route: 048
     Dates: start: 20031101
  5. OMEPRAZOLE [Concomitant]
     Indication: GASTRIC DISORDER
     Route: 048
     Dates: start: 20060117
  6. DOMPERIDONE [Concomitant]
     Indication: VOMITING
     Route: 048
     Dates: start: 20041101
  7. DOMPERIDONE [Concomitant]
     Indication: NAUSEA

REACTIONS (2)
  - ALCOHOLIC LIVER DISEASE [None]
  - GASTROINTESTINAL DISORDER [None]
